FAERS Safety Report 5766079-X (Version None)
Quarter: 2008Q2

REPORT INFORMATION
  Report Type: 
  Country: None (occurrence: None)
  Receive Date: 20080611
  Receipt Date: 20080606
  Transmission Date: 20081010
  Serious: Yes (Hospitalization)
  Sender: FDA-Public Use
  Company Number: IE-BRISTOL-MYERS SQUIBB COMPANY-14207765

PATIENT
  Age: 86 Year
  Sex: Male

DRUGS (15)
  1. ABILIFY [Suspect]
     Route: 048
  2. ALLOPURINOL [Concomitant]
  3. LANSOPRAZOLE [Concomitant]
     Dosage: FORMULATION: ZOTON FT.
  4. COMBIVENT [Concomitant]
     Dosage: 5 ML TWICE DAILY WHEN REQUIRED.
  5. PHOSPHATE-SANDOZ [Concomitant]
  6. ZISPIN [Concomitant]
     Dosage: EVERY NIGHT.
  7. PREDNISOLONE [Concomitant]
  8. MYCOSTATIN [Concomitant]
  9. ZOLPIDEM TARTRATE [Concomitant]
     Dosage: EVERY NIGHT.
  10. ACETAMINOPHEN [Concomitant]
     Dosage: FOUR TIMES A DAY WHEN REQUIRED.
  11. NULYTELY [Concomitant]
     Dosage: ONE TWICE DAILY WHEN REQUIRED.
  12. TRIMETHOPRIM [Concomitant]
  13. ATIVAN [Concomitant]
     Dosage: 1 DOSAGE FORM=0.25-0.5MG WHEN REQUIRED.
  14. BURINEX [Concomitant]
  15. PULMICORT [Concomitant]
     Dosage: FORMULATION: PULMINCORT NEBULIZER.

REACTIONS (2)
  - DYSPHAGIA [None]
  - PNEUMONIA [None]
